FAERS Safety Report 10511059 (Version 1)
Quarter: 2014Q4

REPORT INFORMATION
  Report Type: Spontaneous
  Country: US (occurrence: None)
  Receive Date: 20141009
  Receipt Date: 20141009
  Transmission Date: 20150528
  Serious: Yes (Hospitalization)
  Sender: FDA-Public Use
  Company Number: None

PATIENT
  Age: 48 Year

DRUGS (1)
  1. GLEEVEC [Suspect]
     Active Substance: IMATINIB MESYLATE
     Dosage: 400MG DAILY  DAILY  ORAL
     Route: 048
     Dates: start: 20140613, end: 20141002

REACTIONS (6)
  - Vomiting [None]
  - Hepatic failure [None]
  - Fatigue [None]
  - Anaemia [None]
  - Pruritus [None]
  - Jaundice [None]

NARRATIVE: CASE EVENT DATE: 20141003
